FAERS Safety Report 6710520-2 (Version None)
Quarter: 2010Q2

REPORT INFORMATION
  Report Type: 
  Country: None (occurrence: None)
  Receive Date: 20100504
  Receipt Date: 20090917
  Transmission Date: 20101027
  Serious: Yes (Other)
  Sender: FDA-Public Use
  Company Number: DE-BAYER-200920660GPV

PATIENT
  Age: 23 Year
  Sex: Male
  Weight: 79 kg

DRUGS (4)
  1. CIPRO [Suspect]
     Indication: URINARY TRACT INFECTION
     Dosage: UNIT DOSE: 250 MG
     Route: 048
     Dates: start: 20090410, end: 20090414
  2. CIPRO 1 A PHARMA 500 MG [Suspect]
     Indication: ABSCESS
     Dosage: TOTAL DAILY DOSE: 1000 MG  UNIT DOSE: 500 MG
     Route: 048
     Dates: start: 20090319, end: 20090323
  3. KECIFLOX [Suspect]
     Indication: URINARY TRACT INFECTION
     Dosage: UNIT DOSE: 500 MG
     Route: 048
     Dates: start: 20090324, end: 20090331
  4. CEFADROXIL [Concomitant]
     Indication: TONSILLITIS
     Route: 065
     Dates: start: 20090301, end: 20090309

REACTIONS (24)
  - ARRHYTHMIA [None]
  - ARTHRALGIA [None]
  - CONFUSIONAL STATE [None]
  - DEPRESSION [None]
  - DISORIENTATION [None]
  - DIZZINESS [None]
  - ERECTILE DYSFUNCTION [None]
  - HYPOAESTHESIA [None]
  - MENTAL DISORDER [None]
  - MUSCLE SPASMS [None]
  - MUSCLE TWITCHING [None]
  - MYALGIA [None]
  - NEUROPATHY PERIPHERAL [None]
  - OEDEMA PERIPHERAL [None]
  - PANIC ATTACK [None]
  - PERIPHERAL COLDNESS [None]
  - PHOTOPHOBIA [None]
  - RASH [None]
  - RENAL PAIN [None]
  - RESTLESSNESS [None]
  - SLEEP DISORDER [None]
  - TENDONITIS [None]
  - TINNITUS [None]
  - VISUAL IMPAIRMENT [None]
